FAERS Safety Report 9471007 (Version 2)
Quarter: 2013Q3

REPORT INFORMATION
  Report Type: Spontaneous
  Country: JP (occurrence: JP)
  Receive Date: 20130822
  Receipt Date: 20130822
  Transmission Date: 20140515
  Serious: Yes (Disabling, Other)
  Sender: FDA-Public Use
  Company Number: PHHY2012JP099644

PATIENT
  Sex: 0
  Weight: 42 kg

DRUGS (9)
  1. NEORAL [Suspect]
     Indication: PROPHYLAXIS
     Dosage: 100 MG, DAILY
     Route: 048
     Dates: start: 20121010, end: 20121012
  2. NEORAL [Suspect]
     Indication: OFF LABEL USE
     Dosage: 100 MG, DAILY
     Route: 048
     Dates: start: 20121023, end: 20121030
  3. IMMUNOGLOBULIN G HUMAN [Concomitant]
     Indication: CHRONIC INFLAMMATORY DEMYELINATING POLYRADICULONEUROPATHY
     Route: 042
     Dates: start: 20121018, end: 20121022
  4. THYRADIN [Concomitant]
     Indication: CHRONIC INFLAMMATORY DEMYELINATING POLYRADICULONEUROPATHY
     Dosage: 75 MG, UNK
     Route: 048
     Dates: start: 20121023, end: 20121030
  5. FAMOTIDINE D [Concomitant]
     Indication: GASTRITIS PROPHYLAXIS
     Dosage: 20 MG, UNK
     Route: 048
     Dates: start: 20120921
  6. WARKMIN [Concomitant]
     Indication: OSTEOPOROSIS
     Dosage: 10 UG, UNK
     Route: 048
     Dates: start: 20120921
  7. FOSAMAC [Concomitant]
     Indication: OSTEOPOROSIS
     Dosage: 35 MG, UNK
     Dates: start: 20121203
  8. BAKTAR [Concomitant]
     Indication: CHRONIC INFLAMMATORY DEMYELINATING POLYRADICULONEUROPATHY
     Dosage: 1 DF, UNK
     Route: 048
     Dates: start: 20121116
  9. PREDONINE [Concomitant]
     Indication: CHRONIC INFLAMMATORY DEMYELINATING POLYRADICULONEUROPATHY
     Dosage: 45 MG, UNK
     Route: 048
     Dates: start: 20121116

REACTIONS (3)
  - Movement disorder [Unknown]
  - Muscular weakness [Unknown]
  - Quadriplegia [Unknown]
